FAERS Safety Report 8953853 (Version 1)
Quarter: 2012Q4

REPORT INFORMATION
  Report Type: Report from Study
  Country: CA (occurrence: CA)
  Receive Date: 20121206
  Receipt Date: 20121206
  Transmission Date: 20130627
  Serious: Yes (Other)
  Sender: FDA-Public Use
  Company Number: CA-JNJFOC-20121202297

PATIENT
  Age: 56 Year
  Sex: Female
  Weight: 127 kg

DRUGS (10)
  1. STELARA [Suspect]
     Indication: PSORIASIS
     Route: 058
     Dates: start: 20111026, end: 20120516
  2. CITALOPRAM [Concomitant]
  3. METHOTREXATE [Concomitant]
  4. FOLIC ACID [Concomitant]
  5. SYNTHROID [Concomitant]
  6. PANTOLOC [Concomitant]
  7. NAPROSYN [Concomitant]
  8. APO-HYDRO [Concomitant]
  9. XALATAN [Concomitant]
  10. ATACAND [Concomitant]

REACTIONS (1)
  - Chest pain [Unknown]
